FAERS Safety Report 21233462 (Version 6)
Quarter: 2022Q3

REPORT INFORMATION
  Report Type: Spontaneous
  Country: CN (occurrence: CN)
  Receive Date: 20220819
  Receipt Date: 20220907
  Transmission Date: 20221027
  Serious: Yes (Other)
  Sender: FDA-Public Use
  Company Number: CN-BoehringerIngelheim-2022-BI-186855

PATIENT
  Age: 69 Year
  Sex: Male
  Weight: 69 kg

DRUGS (2)
  1. ALTEPLASE [Suspect]
     Active Substance: ALTEPLASE
     Indication: Thrombolysis
     Dosage: IV BOLUS
     Route: 040
     Dates: start: 20220607, end: 20220607
  2. ALTEPLASE [Suspect]
     Active Substance: ALTEPLASE
     Dosage: IV BOLUS
     Route: 040
     Dates: start: 20220607, end: 20220607

REACTIONS (2)
  - Depressed level of consciousness [Recovered/Resolved]
  - Gingival bleeding [Recovered/Resolved]

NARRATIVE: CASE EVENT DATE: 20220607
